FAERS Safety Report 13701035 (Version 1)
Quarter: 2017Q2

REPORT INFORMATION
  Report Type: Spontaneous
  Country: US (occurrence: US)
  Receive Date: 20170628
  Receipt Date: 20170628
  Transmission Date: 20170830
  Serious: Yes (Hospitalization)
  Sender: FDA-Public Use
  Company Number: None

PATIENT
  Age: 68 Year
  Sex: Male
  Weight: 75 kg

DRUGS (2)
  1. CLOPIDOGREL [Suspect]
     Active Substance: CLOPIDOGREL BISULFATE
     Dosage: ?          OTHER DOSE:MG;?
     Route: 048
     Dates: start: 20160625, end: 20170624
  2. ASPIRIN. [Suspect]
     Active Substance: ASPIRIN
     Dosage: ?          OTHER DOSE:MG;?

REACTIONS (1)
  - Haematuria [None]

NARRATIVE: CASE EVENT DATE: 20170623
